FAERS Safety Report 21785250 (Version 5)
Quarter: 2023Q1

REPORT INFORMATION
  Report Type: Report from Study
  Country: ZA (occurrence: None)
  Receive Date: 20221227
  Receipt Date: 20230317
  Transmission Date: 20230418
  Serious: Yes (Hospitalization)
  Sender: FDA-Public Use
  Company Number: ZA-Eisai Medical Research-EC-2022-130801

PATIENT
  Age: 15 Year
  Sex: Female
  Weight: 42 kg

DRUGS (3)
  1. LENVATINIB [Suspect]
     Active Substance: LENVATINIB
     Indication: Synovial sarcoma
     Route: 048
     Dates: start: 20211022, end: 20221220
  2. NUCOTRIM [Concomitant]
     Dates: start: 20210827
  3. NYSTACID [Concomitant]
     Dates: start: 20210817

REACTIONS (1)
  - Pneumothorax [Recovered/Resolved]

NARRATIVE: CASE EVENT DATE: 20221221
